FAERS Safety Report 9150484 (Version 1)
Quarter: 2013Q1

REPORT INFORMATION
  Report Type: Spontaneous
  Country: US (occurrence: US)
  Receive Date: 20130308
  Receipt Date: 20130308
  Transmission Date: 20140127
  Serious: No
  Sender: FDA-Public Use
  Company Number: US-GLAXOSMITHKLINE-A0993656A

PATIENT
  Age: 70 Year
  Sex: Female

DRUGS (4)
  1. NICORETTE [Suspect]
     Indication: PRODUCT USED FOR UNKNOWN INDICATION
     Route: 002
     Dates: start: 1990
  2. WELLBUTRIN [Suspect]
     Indication: PRODUCT USED FOR UNKNOWN INDICATION
     Route: 048
     Dates: start: 1990
  3. LITHIUM [Suspect]
  4. INHALERS [Concomitant]
     Route: 055

REACTIONS (4)
  - Tremor [Not Recovered/Not Resolved]
  - Condition aggravated [Unknown]
  - Nicotine dependence [Unknown]
  - Intentional drug misuse [Unknown]
